FAERS Safety Report 14685078 (Version 9)
Quarter: 2019Q1

REPORT INFORMATION
  Report Type: Report from Study
  Country: US (occurrence: US)
  Receive Date: 20180327
  Receipt Date: 20190314
  Transmission Date: 20190417
  Serious: Yes (Hospitalization, Other)
  Sender: FDA-Public Use
  Company Number: US-CLOVIS ONCOLOGY-CLO-2018-000153

PATIENT
  Age: 68 Year
  Sex: Female

DRUGS (5)
  1. RUBRACA [Suspect]
     Active Substance: RUCAPARIB CAMSYLATE
     Indication: UTERINE CANCER
     Dosage: 300 MG, QD
     Route: 048
     Dates: start: 20171102, end: 20180522
  2. RUBRACA [Suspect]
     Active Substance: RUCAPARIB CAMSYLATE
     Dosage: 600 MG, BID
     Route: 048
     Dates: start: 20180521
  3. RUBRACA [Suspect]
     Active Substance: RUCAPARIB CAMSYLATE
     Indication: OVARIAN CANCER
     Dosage: 600 MG, BID
     Route: 048
     Dates: start: 20180204
  4. RUBRACA [Suspect]
     Active Substance: RUCAPARIB CAMSYLATE
     Dosage: 600 MG, BID
     Route: 048
     Dates: start: 20171102
  5. RUBRACA [Suspect]
     Active Substance: RUCAPARIB CAMSYLATE
     Indication: SOFT TISSUE DISORDER
     Dosage: 600 MG, BID
     Route: 048
     Dates: start: 20180204, end: 20180511

REACTIONS (27)
  - Haemoglobin decreased [Recovering/Resolving]
  - Blood pressure increased [Unknown]
  - Liver function test increased [Unknown]
  - Dizziness [Recovering/Resolving]
  - Lymphoedema [Not Recovered/Not Resolved]
  - Constipation [Recovering/Resolving]
  - Diarrhoea [Recovering/Resolving]
  - Fatigue [Not Recovered/Not Resolved]
  - Platelet count decreased [Recovering/Resolving]
  - Skin irritation [Recovering/Resolving]
  - Flushing [Recovering/Resolving]
  - Gastrointestinal disorder [Unknown]
  - White blood cell count decreased [Unknown]
  - Sunburn [Recovering/Resolving]
  - Dysgeusia [Not Recovered/Not Resolved]
  - Blood count abnormal [Unknown]
  - Flatulence [Recovering/Resolving]
  - Product dose omission [Unknown]
  - Gastrointestinal haemorrhage [Recovered/Resolved]
  - Neuropathy peripheral [Not Recovered/Not Resolved]
  - Blood pressure decreased [Unknown]
  - Carbohydrate antigen 125 increased [Unknown]
  - Hepatic enzyme increased [Recovered/Resolved]
  - Red blood cell abnormality [Unknown]
  - Localised infection [Recovered/Resolved]
  - Liver function test increased [Recovered/Resolved]
  - Nausea [Recovering/Resolving]

NARRATIVE: CASE EVENT DATE: 2018
